FAERS Safety Report 9710895 (Version 3)
Quarter: 2014Q2

REPORT INFORMATION
  Report Type: Spontaneous
  Country: US (occurrence: US)
  Receive Date: 20131126
  Receipt Date: 20140510
  Transmission Date: 20141212
  Serious: No
  Sender: FDA-Public Use
  Company Number: US201210010088

PATIENT
  Age: 77 Year
  Sex: Male
  Weight: 88.43 kg

DRUGS (5)
  1. BYDUREON [Suspect]
     Indication: TYPE 2 DIABETES MELLITUS
     Dosage: LOT#73069,JAN14 + 73416,APR16
     Route: 058
     Dates: start: 201210
  2. BYETTA PEN DISPOSABLE [Suspect]
     Route: 058
  3. EXENATIDE UNK STRENGTH PEN, DISPOSABLE DEVICE [Concomitant]
  4. METOPROLOL [Concomitant]
  5. LOSARTAN [Concomitant]

REACTIONS (3)
  - Blood glucose fluctuation [Unknown]
  - Injection site nodule [Not Recovered/Not Resolved]
  - Product quality issue [Unknown]
